FAERS Safety Report 9433172 (Version 1)
Quarter: 2013Q3

REPORT INFORMATION
  Report Type: Spontaneous
  Country: US (occurrence: US)
  Receive Date: 20130731
  Receipt Date: 20130731
  Transmission Date: 20140515
  Serious: Yes (Congenital Anomaly)
  Sender: FDA-Public Use
  Company Number: US-GLAXOSMITHKLINE-A1035486A

PATIENT
  Age: 0 Day
  Sex: Female

DRUGS (1)
  1. BUPROPION [Suspect]
     Indication: PRODUCT USED FOR UNKNOWN INDICATION
     Route: 064
     Dates: start: 200902

REACTIONS (6)
  - Ventricular septal defect [Unknown]
  - Cardiac arrest [Unknown]
  - Skull malformation [Unknown]
  - Supraventricular tachycardia [Unknown]
  - Atrial septal defect [Unknown]
  - Foetal exposure during pregnancy [Unknown]
